FAERS Safety Report 6144378-X (Version None)
Quarter: 2009Q2

REPORT INFORMATION
  Report Type: 
  Country: None (occurrence: None)
  Receive Date: 20090406
  Receipt Date: 20090331
  Transmission Date: 20091009
  Serious: No
  Sender: FDA-Public Use
  Company Number: US-B.I. PHARMACEUTICALS,INC./RIDGEFIELD-2009-BP-04017BP

PATIENT
  Age: 74 Year
  Sex: Female
  Weight: 68.5 kg

DRUGS (3)
  1. ZANTAC 150 [Suspect]
     Route: 048
     Dates: start: 20090226
  2. GAS-X [Suspect]
     Indication: FLATULENCE
     Route: 048
     Dates: start: 20090226, end: 20090226
  3. TOPROL-XL [Concomitant]

REACTIONS (2)
  - ABDOMINAL DISCOMFORT [None]
  - NAUSEA [None]
